FAERS Safety Report 5108516-X (Version None)
Quarter: 2006Q3

REPORT INFORMATION
  Report Type: 
  Country: None (occurrence: None)
  Receive Date: 20060914
  Receipt Date: 20060829
  Transmission Date: 20061208
  Serious: No
  Sender: FDA-Public Use
  Company Number: 36239

PATIENT
  Age: 70 Year
  Sex: Male

DRUGS (1)
  1. CHLORAMPHENICOL [Suspect]
     Route: 047

REACTIONS (3)
  - IRIDOCYCLITIS [None]
  - MEDICATION RESIDUE [None]
  - POSTOPERATIVE WOUND COMPLICATION [None]
